FAERS Safety Report 7049030-4 (Version None)
Quarter: 2010Q4

REPORT INFORMATION
  Report Type: 
  Country: None (occurrence: None)
  Receive Date: 20101018
  Receipt Date: 20101006
  Transmission Date: 20110411
  Serious: Yes (Hospitalization)
  Sender: FDA-Public Use
  Company Number: US-SANOFI-AVENTIS-2010SA061730

PATIENT
  Age: 50 Year
  Sex: Female

DRUGS (2)
  1. LOVENOX [Suspect]
     Indication: HYSTERECTOMY
     Route: 065
     Dates: start: 20100909, end: 20100915
  2. LOVENOX [Suspect]
     Route: 065
     Dates: start: 20100927

REACTIONS (1)
  - BACTERAEMIA [None]
